FAERS Safety Report 18550714 (Version 6)
Quarter: 2021Q1

REPORT INFORMATION
  Report Type: Report from Study
  Country: US (occurrence: US)
  Receive Date: 20201126
  Receipt Date: 20210315
  Transmission Date: 20210419
  Serious: No
  Sender: FDA-Public Use
  Company Number: NVSC2020US316155

PATIENT
  Sex: Male

DRUGS (1)
  1. ENTRESTO [Suspect]
     Active Substance: SACUBITRIL\VALSARTAN
     Indication: PRODUCT USED FOR UNKNOWN INDICATION
     Dosage: 1 DF, BID (24/26 MG)
     Route: 048

REACTIONS (15)
  - Vomiting [Unknown]
  - Back pain [Unknown]
  - Nausea [Unknown]
  - Fatigue [Not Recovered/Not Resolved]
  - Blood glucose abnormal [Unknown]
  - Chest discomfort [Unknown]
  - Oropharyngeal pain [Unknown]
  - Illness [Unknown]
  - Pain in extremity [Unknown]
  - Blood potassium increased [Unknown]
  - Malaise [Unknown]
  - Hypotension [Unknown]
  - Pain of skin [Unknown]
  - Blood phosphorus increased [Unknown]
  - Chills [Not Recovered/Not Resolved]
